FAERS Safety Report 5125814-4 (Version None)
Quarter: 2006Q4

REPORT INFORMATION
  Report Type: 
  Country: None (occurrence: None)
  Receive Date: 20061010
  Receipt Date: 20061010
  Transmission Date: 20070319
  Serious: No
  Sender: FDA-Public Use
  Company Number: None

PATIENT
  Age: 78 Year
  Sex: Female
  Weight: 74.8435 kg

DRUGS (6)
  1. MOBIC [Suspect]
     Indication: ARTHRITIS
     Dosage: 7.5 MG ORALLY ONCE DAILY
     Route: 048
     Dates: end: 20060223
  2. SYNTHROID [Concomitant]
  3. BENICAR [Concomitant]
  4. LIPITOR [Concomitant]
  5. HYDROCHLOROTHIAZIDE [Concomitant]
  6. TYLENOL [Concomitant]

REACTIONS (3)
  - ANAEMIA [None]
  - BLOOD CREATININE INCREASED [None]
  - BLOOD UREA INCREASED [None]
